FAERS Safety Report 16304804 (Version 1)
Quarter: 2019Q2

REPORT INFORMATION
  Report Type: Spontaneous
  Country: US (occurrence: US)
  Receive Date: 20190406
  Receipt Date: 20190406
  Transmission Date: 20190711
  Serious: Yes (Hospitalization)
  Sender: FDA-Public Use
  Company Number: None

PATIENT
  Age: 61 Year
  Sex: Female
  Weight: 88 kg

DRUGS (2)
  1. CARBOPLATIN. [Suspect]
     Active Substance: CARBOPLATIN
     Dates: end: 20190306
  2. TAXOL [Suspect]
     Active Substance: PACLITAXEL
     Dates: end: 20190320

REACTIONS (4)
  - Back pain [None]
  - Abdominal pain [None]
  - Musculoskeletal pain [None]
  - Pyrexia [None]

NARRATIVE: CASE EVENT DATE: 20190325
